FAERS Safety Report 7013954-4 (Version None)
Quarter: 2010Q3

REPORT INFORMATION
  Report Type: 
  Country: None (occurrence: None)
  Receive Date: 20100924
  Receipt Date: 20100920
  Transmission Date: 20110219
  Serious: Yes (Life-Threatening, Hospitalization)
  Sender: FDA-Public Use
  Company Number: FR-AMGEN-QUU434339

PATIENT
  Sex: Male

DRUGS (4)
  1. ENBREL [Suspect]
     Indication: PSORIASIS
     Route: 058
     Dates: start: 20070301, end: 20070601
  2. ENBREL [Suspect]
     Route: 058
     Dates: start: 20070601
  3. ENBREL [Suspect]
     Route: 058
     Dates: end: 20100401
  4. REMICADE [Suspect]
     Indication: PSORIASIS
     Dosage: UNKNOWN
     Route: 042
     Dates: start: 20060804, end: 20070213

REACTIONS (2)
  - HEPATIC NEOPLASM MALIGNANT RESECTABLE [None]
  - PERITONEAL HAEMORRHAGE [None]
